FAERS Safety Report 25950418 (Version 1)
Quarter: 2025Q4

REPORT INFORMATION
  Report Type: Spontaneous
  Country: US (occurrence: US)
  Receive Date: 20251023
  Receipt Date: 20251023
  Transmission Date: 20260117
  Serious: No
  Sender: SANOFI AVENTIS
  Company Number: US-SA-2025SA314804

PATIENT
  Age: 7 Year
  Sex: Female

DRUGS (2)
  1. DUPIXENT [Suspect]
     Active Substance: DUPILUMAB
     Indication: Eczema
     Dosage: 400.000MG 1X
     Route: 058
     Dates: start: 20250512, end: 20250512
  2. DUPIXENT [Suspect]
     Active Substance: DUPILUMAB
     Dosage: 200.000MG QOW
     Route: 058
     Dates: start: 202505

REACTIONS (3)
  - Eczema [Recovering/Resolving]
  - Pruritus [Recovering/Resolving]
  - Erythema [Recovering/Resolving]

NARRATIVE: CASE EVENT DATE: 20251016
